FAERS Safety Report 7829013-4 (Version None)
Quarter: 2011Q4

REPORT INFORMATION
  Report Type: 
  Country: None (occurrence: None)
  Receive Date: 20111020
  Receipt Date: 20111007
  Transmission Date: 20120403
  Serious: Yes (Hospitalization)
  Sender: FDA-Public Use
  Company Number: FR-MYLANLABS-2011S1020842

PATIENT
  Age: 86 Year
  Sex: Male

DRUGS (13)
  1. BUSPIRONE HCL [Concomitant]
     Indication: PRODUCT USED FOR UNKNOWN INDICATION
  2. STABLON [Concomitant]
     Indication: PRODUCT USED FOR UNKNOWN INDICATION
  3. PERMIXON [Concomitant]
     Indication: PRODUCT USED FOR UNKNOWN INDICATION
  4. GENTAMICIN [Suspect]
     Dates: start: 20110909
  5. AMOXICILLIN AND CLAVULANATE POTASSIUM [Suspect]
     Indication: PRODUCT USED FOR UNKNOWN INDICATION
     Route: 048
     Dates: start: 20110907, end: 20110907
  6. VANCOMYCIN [Suspect]
     Indication: PRODUCT USED FOR UNKNOWN INDICATION
     Route: 042
     Dates: start: 20110907, end: 20110907
  7. LOVENOX [Suspect]
     Indication: PRODUCT USED FOR UNKNOWN INDICATION
     Route: 058
     Dates: start: 20110907, end: 20110907
  8. GENTAMICIN [Suspect]
     Indication: PRODUCT USED FOR UNKNOWN INDICATION
     Route: 042
     Dates: start: 20110907, end: 20110907
  9. MODOPAR [Concomitant]
     Indication: PRODUCT USED FOR UNKNOWN INDICATION
  10. ACETYLCYSTEINE [Concomitant]
     Indication: PRODUCT USED FOR UNKNOWN INDICATION
  11. DUPHALAC [Concomitant]
     Indication: PRODUCT USED FOR UNKNOWN INDICATION
  12. KAYEXALATE [Suspect]
     Indication: PRODUCT USED FOR UNKNOWN INDICATION
     Route: 048
     Dates: start: 20110907, end: 20110907
  13. LORAZEPAM [Concomitant]
     Indication: PRODUCT USED FOR UNKNOWN INDICATION

REACTIONS (3)
  - DERMATITIS EXFOLIATIVE [None]
  - HYPOTENSION [None]
  - VOMITING [None]
